FAERS Safety Report 21106239 (Version 4)
Quarter: 2022Q4

REPORT INFORMATION
  Report Type: Spontaneous
  Country: US (occurrence: US)
  Receive Date: 20220720
  Receipt Date: 20221026
  Transmission Date: 20230113
  Serious: No
  Sender: FDA-Public Use
  Company Number: US-BRISTOL-MYERS SQUIBB COMPANY-2022-076977

PATIENT
  Age: 83 Year
  Sex: Male

DRUGS (2)
  1. REVLIMID [Suspect]
     Active Substance: LENALIDOMIDE
     Indication: Product used for unknown indication
     Route: 048
     Dates: start: 202204
  2. REVLIMID [Suspect]
     Active Substance: LENALIDOMIDE
     Dosage: FREQUENCY-ONE CAPSULE EVERY OTHER DAY FOR ONE WEEK
     Route: 048

REACTIONS (8)
  - Full blood count decreased [Unknown]
  - Constipation [Unknown]
  - Contusion [Unknown]
  - Ocular hyperaemia [Unknown]
  - Rash [Unknown]
  - Cognitive disorder [Unknown]
  - Visual impairment [Unknown]
  - Lacrimation increased [Unknown]

NARRATIVE: CASE EVENT DATE: 20220628
